FAERS Safety Report 12132157 (Version 1)
Quarter: 2016Q1

REPORT INFORMATION
  Report Type: Report from Study
  Country: BE (occurrence: GB)
  Receive Date: 20160301
  Receipt Date: 20160301
  Transmission Date: 20160526
  Serious: Yes (Hospitalization)
  Sender: FDA-Public Use
  Company Number: BE-SA-2016SA035670

PATIENT
  Age: 62 Year
  Sex: Male

DRUGS (2)
  1. CISPLATIN. [Suspect]
     Active Substance: CISPLATIN
     Indication: BLADDER CANCER
     Route: 065
  2. CABAZITAXEL [Suspect]
     Active Substance: CABAZITAXEL
     Indication: BLADDER CANCER
     Route: 042
     Dates: start: 20130212, end: 20130326

REACTIONS (4)
  - Pneumaturia [Recovered/Resolved]
  - Dysuria [Recovered/Resolved]
  - Faecaluria [Recovered/Resolved]
  - Vesical fistula [Recovered/Resolved]

NARRATIVE: CASE EVENT DATE: 20130412
